FAERS Safety Report 7178874-3 (Version None)
Quarter: 2010Q4

REPORT INFORMATION
  Report Type: 
  Country: None (occurrence: None)
  Receive Date: 20101208
  Receipt Date: 20101208
  Transmission Date: 20110411
  Serious: Yes (Life-Threatening, Other)
  Sender: FDA-Public Use
  Company Number: None

PATIENT
  Sex: Female
  Weight: 63.5036 kg

DRUGS (1)
  1. DARVOCET-N 100 [Suspect]
     Indication: ARTHRITIS
     Dosage: 3 OR 4 DAY
     Dates: start: 19850101, end: 20100101

REACTIONS (12)
  - ABDOMINAL PAIN UPPER [None]
  - CONSTIPATION [None]
  - DECREASED APPETITE [None]
  - DIZZINESS [None]
  - DRY MOUTH [None]
  - HEADACHE [None]
  - HYPERTENSION [None]
  - NAUSEA [None]
  - PRESYNCOPE [None]
  - PRURITUS [None]
  - URTICARIA [None]
  - VISION BLURRED [None]
